FAERS Safety Report 25989373 (Version 2)
Quarter: 2025Q4

REPORT INFORMATION
  Report Type: Spontaneous
  Country: US (occurrence: US)
  Receive Date: 20251103
  Receipt Date: 20251111
  Transmission Date: 20260117
  Serious: Yes (Other)
  Sender: GILEAD
  Company Number: US-GILEAD-2025-0734577

PATIENT
  Sex: Male

DRUGS (1)
  1. LIVDELZI [Suspect]
     Active Substance: SELADELPAR LYSINE
     Indication: Primary biliary cholangitis
     Dosage: UNK
     Route: 065

REACTIONS (1)
  - Bile duct stenosis [Not Recovered/Not Resolved]
